FAERS Safety Report 4285454-6 (Version None)
Quarter: 2004Q1

REPORT INFORMATION
  Report Type: 
  Country: None (occurrence: None)
  Receive Date: 20040202
  Receipt Date: 20040123
  Transmission Date: 20041129
  Serious: Yes (Other)
  Sender: FDA-Public Use
  Company Number: 200410059BNE

PATIENT
  Age: 65 Year
  Sex: Male

DRUGS (4)
  1. LEVITRA [Suspect]
     Indication: ERECTILE DYSFUNCTION
     Dosage: PRN, ORAL
     Route: 048
  2. VITAMIN C [Concomitant]
  3. CALCIUM SUPPLEMENT [Concomitant]
  4. VIAGRA [Concomitant]

REACTIONS (4)
  - CHROMATOPSIA [None]
  - DIZZINESS [None]
  - FEELING ABNORMAL [None]
  - HEADACHE [None]
